FAERS Safety Report 9028237 (Version 1)
Quarter: 2013Q1

REPORT INFORMATION
  Report Type: Spontaneous
  Country: US (occurrence: None)
  Receive Date: 20130115
  Receipt Date: 20130115
  Transmission Date: 20140127
  Serious: Yes (Death, Other)
  Sender: FDA-Public Use
  Company Number: None

PATIENT
  Age: 36 Year
  Sex: Female
  Weight: 90.72 kg

DRUGS (2)
  1. MAKENA [Suspect]
     Indication: PREMATURE LABOUR
     Dosage: ONCE
     Route: 030
     Dates: start: 20121218, end: 20121225
  2. MAKENA [Suspect]
     Indication: PROPHYLAXIS
     Dosage: ONCE
     Route: 030
     Dates: start: 20121218, end: 20121225

REACTIONS (2)
  - Exposure during pregnancy [None]
  - Stillbirth [None]
